FAERS Safety Report 7480480-8 (Version None)
Quarter: 2011Q2

REPORT INFORMATION
  Report Type: 
  Country: None (occurrence: None)
  Receive Date: 20110505
  Receipt Date: 20110503
  Transmission Date: 20111010
  Serious: Yes (Death, Hospitalization)
  Sender: FDA-Public Use
  Company Number: 2011SP005433

PATIENT
  Age: 72 Year
  Sex: Female
  Weight: 75 kg

DRUGS (6)
  1. TEMODAL [Suspect]
     Indication: GLIOBLASTOMA
     Dosage: 110 MG/M2;
     Dates: start: 20090603, end: 20090623
  2. VALPROIC ACID [Concomitant]
  3. DIGIMERCK [Concomitant]
  4. ACTRAPID /00646001/ [Concomitant]
  5. NORVASC [Concomitant]
  6. BISOPROLOL FUMARATE [Concomitant]

REACTIONS (5)
  - PYREXIA [None]
  - EPILEPSY [None]
  - BRONCHOPNEUMONIA [None]
  - CARDIOVASCULAR DISORDER [None]
  - URINARY TRACT INFECTION [None]
